FAERS Safety Report 23605199 (Version 1)
Quarter: 2024Q1

REPORT INFORMATION
  Report Type: Spontaneous
  Country: US (occurrence: None)
  Receive Date: 20240306
  Receipt Date: 20240306
  Transmission Date: 20240409
  Serious: Yes (unspecified)
  Sender: FDA-Public Use
  Company Number: None

PATIENT
  Age: 44 Year
  Sex: Female
  Weight: 87.4 kg

DRUGS (8)
  1. DOCETAXEL [Suspect]
     Active Substance: DOCETAXEL\DOCETAXEL ANHYDROUS
     Indication: Breast cancer
     Dosage: OTHER FREQUENCY : EVERY 21 DAYS;?
     Route: 042
     Dates: start: 20240118, end: 20240208
  2. PERTUZUMAB [Concomitant]
     Active Substance: PERTUZUMAB
     Dates: start: 20240118
  3. TRASTUZUMAB-ANNS [Concomitant]
     Active Substance: TRASTUZUMAB-ANNS
     Dates: start: 20240118
  4. CARBOPLATIN [Concomitant]
     Active Substance: CARBOPLATIN
     Dates: start: 20240118
  5. PALONOSETRON [Concomitant]
     Active Substance: PALONOSETRON
     Dates: start: 20240118
  6. DEXAMETHASONE [Concomitant]
     Active Substance: DEXAMETHASONE
     Dates: start: 20240118
  7. DIPHENHYDRAMINE [Concomitant]
     Active Substance: DIPHENHYDRAMINE
     Dates: start: 20240118
  8. FAMOTIDINE [Concomitant]
     Active Substance: FAMOTIDINE
     Dates: start: 20240118

REACTIONS (6)
  - Chest discomfort [None]
  - Flushing [None]
  - Dyspnoea [None]
  - Oxygen saturation decreased [None]
  - Wheezing [None]
  - Therapy cessation [None]

NARRATIVE: CASE EVENT DATE: 20240208
